FAERS Safety Report 9799855 (Version 1)
Quarter: 2014Q1

REPORT INFORMATION
  Report Type: Spontaneous
  Country: US (occurrence: US)
  Receive Date: 20140106
  Receipt Date: 20140106
  Transmission Date: 20141002
  Serious: Yes (Other)
  Sender: FDA-Public Use
  Company Number: US-GLAXOSMITHKLINE-A1055256A

PATIENT
  Age: 69 Year
  Sex: Female

DRUGS (1)
  1. REQUIP [Suspect]
     Indication: PRODUCT USED FOR UNKNOWN INDICATION
     Dosage: 3MG UNKNOWN
     Route: 065
     Dates: start: 20090918

REACTIONS (2)
  - Cerebrovascular accident [Unknown]
  - Aphasia [Not Recovered/Not Resolved]
